FAERS Safety Report 24996513 (Version 1)
Quarter: 2025Q1

REPORT INFORMATION
  Report Type: Spontaneous
  Country: US (occurrence: US)
  Receive Date: 20250221
  Receipt Date: 20250221
  Transmission Date: 20250409
  Serious: No
  Sender: MYLAN
  Company Number: US-MYLANLABS-2025M1014732

PATIENT

DRUGS (1)
  1. LEVOTHYROXINE SODIUM [Suspect]
     Active Substance: LEVOTHYROXINE SODIUM
     Indication: Product used for unknown indication
     Route: 065

REACTIONS (8)
  - Malaise [Unknown]
  - Nonspecific reaction [Unknown]
  - Product measured potency issue [Unknown]
  - Tinnitus [Unknown]
  - Blood thyroid stimulating hormone increased [Unknown]
  - Weight increased [Unknown]
  - Recalled product administered [Unknown]
  - Recalled product [Unknown]

NARRATIVE: CASE EVENT DATE: 20241101
